FAERS Safety Report 6695817-7 (Version None)
Quarter: 2010Q2

REPORT INFORMATION
  Report Type: 
  Country: None (occurrence: None)
  Receive Date: 20100423
  Receipt Date: 20100423
  Transmission Date: 20101027
  Serious: Yes (Other)
  Sender: FDA-Public Use
  Company Number: None

PATIENT
  Age: 68 Year
  Weight: 72.5755 kg

DRUGS (1)
  1. AMBIEN [Suspect]
     Indication: SLEEP DISORDER
     Dosage: 10MG NO PO
     Route: 048
     Dates: start: 20100406, end: 20100406

REACTIONS (5)
  - FLASHBACK [None]
  - INFUSION SITE HAEMORRHAGE [None]
  - PANIC ATTACK [None]
  - RESPIRATORY DISORDER [None]
  - SOMNAMBULISM [None]
